FAERS Safety Report 7820776-0 (Version None)
Quarter: 2011Q4

REPORT INFORMATION
  Report Type: 
  Country: None (occurrence: None)
  Receive Date: 20111018
  Receipt Date: 20111014
  Transmission Date: 20120403
  Serious: Yes (Life-Threatening, Hospitalization)
  Sender: FDA-Public Use
  Company Number: US-BRISTOL-MYERS SQUIBB COMPANY-16168155

PATIENT
  Age: 48 Year
  Sex: Male

DRUGS (8)
  1. LEVEMIR [Suspect]
     Indication: TYPE 2 DIABETES MELLITUS
     Dosage: 1 DF : 10UNITS NOS
     Dates: start: 20110802
  2. BLINDED: SAXAGLIPTIN [Suspect]
     Indication: TYPE 2 DIABETES MELLITUS
     Dates: start: 20100812
  3. MINOCIN [Concomitant]
     Dates: start: 20101029
  4. GLIPIZIDE [Suspect]
     Indication: TYPE 2 DIABETES MELLITUS
  5. BLINDED: PLACEBO [Suspect]
     Indication: TYPE 2 DIABETES MELLITUS
     Dates: start: 20100812
  6. COUMADIN [Suspect]
  7. RIFAMPIN [Concomitant]
     Dates: start: 20100917
  8. VANCOMYCIN HCL [Concomitant]
     Dates: start: 20100917

REACTIONS (2)
  - ANAEMIA [None]
  - UPPER GASTROINTESTINAL HAEMORRHAGE [None]
